FAERS Safety Report 11424855 (Version 1)
Quarter: 2015Q3

REPORT INFORMATION
  Report Type: Spontaneous
  Country: US (occurrence: US)
  Receive Date: 20150821
  Receipt Date: 20150821
  Transmission Date: 20151125
  Serious: No
  Sender: FDA-Public Use
  Company Number: US-ELI_LILLY_AND_COMPANY-US201212005144

PATIENT
  Sex: Female

DRUGS (4)
  1. HUMULIN R [Suspect]
     Active Substance: INSULIN HUMAN
     Dosage: 15 U, IN THE AFTERNOON
  2. HUMULIN R [Suspect]
     Active Substance: INSULIN HUMAN
     Dosage: 15 U, EACH EVENING
  3. LIPITOR [Concomitant]
     Active Substance: ATORVASTATIN CALCIUM
     Dosage: UNK
     Dates: start: 201208
  4. HUMULIN R [Suspect]
     Active Substance: INSULIN HUMAN
     Indication: DIABETES MELLITUS
     Dosage: 20 U, EACH MORNING

REACTIONS (1)
  - Burning sensation [Unknown]
